FAERS Safety Report 20139566 (Version 3)
Quarter: 2022Q1

REPORT INFORMATION
  Report Type: Spontaneous
  Country: GB (occurrence: GB)
  Receive Date: 20211202
  Receipt Date: 20220224
  Transmission Date: 20220423
  Serious: Yes (Hospitalization)
  Sender: FDA-Public Use
  Company Number: GB-CELGENE-GBR-20211107738

PATIENT
  Age: 53 Year
  Sex: Female
  Weight: 78 kg

DRUGS (35)
  1. POMALIDOMIDE [Suspect]
     Active Substance: POMALIDOMIDE
     Indication: Plasma cell myeloma
     Dosage: 4 MILLIGRAM
     Route: 048
     Dates: start: 20210611, end: 20210613
  2. POMALIDOMIDE [Suspect]
     Active Substance: POMALIDOMIDE
     Dosage: 4 MILLIGRAM
     Route: 048
     Dates: start: 20210611, end: 20210624
  3. CILTACABTAGENE AUTOLEUCEL [Suspect]
     Active Substance: CILTACABTAGENE AUTOLEUCEL
     Indication: Plasma cell myeloma
     Route: 041
  4. BORTEZOMIB [Suspect]
     Active Substance: BORTEZOMIB
     Indication: Plasma cell myeloma
     Route: 058
     Dates: start: 20210611, end: 20210611
  5. BORTEZOMIB [Suspect]
     Active Substance: BORTEZOMIB
     Route: 058
     Dates: start: 20210621
  6. DEXAMETHASONE [Suspect]
     Active Substance: DEXAMETHASONE
     Indication: Plasma cell myeloma
     Dosage: 20 MILLIGRAM
     Route: 048
     Dates: start: 20210611, end: 20210612
  7. DEXAMETHASONE [Suspect]
     Active Substance: DEXAMETHASONE
     Dosage: 20 MILLIGRAM
     Route: 048
     Dates: start: 20210624
  8. CYCLOPHOSPHAMIDE [Concomitant]
     Active Substance: CYCLOPHOSPHAMIDE
     Indication: Plasma cell myeloma
     Route: 065
  9. FLUDARABINE [Concomitant]
     Active Substance: FLUDARABINE PHOSPHATE
     Indication: Plasma cell myeloma
     Route: 065
  10. NITROFURANTOIN [Concomitant]
     Active Substance: NITROFURANTOIN
     Indication: Urinary tract infection
     Dosage: 200 MILLIGRAM
     Route: 048
     Dates: start: 20210706, end: 20210708
  11. BUDESONIDE\FORMOTEROL [Concomitant]
     Active Substance: BUDESONIDE\FORMOTEROL
     Indication: Asthma prophylaxis
     Dosage: 160/4.5
     Route: 065
     Dates: start: 20150911
  12. CLODRONIC ACID [Concomitant]
     Active Substance: CLODRONIC ACID
     Indication: Prophylaxis
     Dosage: 1600 MILLIGRAM
     Route: 048
     Dates: start: 20210426, end: 20210614
  13. FEXOFENADINE [Concomitant]
     Active Substance: FEXOFENADINE HYDROCHLORIDE
     Indication: Seasonal allergy
     Dosage: 180 MILLIGRAM
     Route: 048
     Dates: start: 20050901
  14. FUROSEMIDE [Concomitant]
     Active Substance: FUROSEMIDE
     Indication: Diuretic therapy
     Route: 048
     Dates: start: 20210426, end: 20210613
  15. GABAPENTIN [Concomitant]
     Active Substance: GABAPENTIN
     Indication: Peripheral sensory neuropathy
     Dosage: 900 MILLIGRAM
     Route: 048
     Dates: start: 20210507, end: 20210817
  16. GABAPENTIN [Concomitant]
     Active Substance: GABAPENTIN
     Dosage: 600 MILLIGRAM
     Route: 048
     Dates: end: 20210729
  17. GABAPENTIN [Concomitant]
     Active Substance: GABAPENTIN
     Dosage: 600 MILLIGRAM
     Route: 048
  18. POLYETHYLENE GLYCOL 3350\POTASSIUM CHLORIDE\SODIUM BICARBONATE\SODIUM [Concomitant]
     Active Substance: POLYETHYLENE GLYCOL 3350\POTASSIUM CHLORIDE\SODIUM BICARBONATE\SODIUM CHLORIDE
     Indication: Constipation
     Route: 048
     Dates: start: 20210426, end: 20210701
  19. MONTELUKAST [Concomitant]
     Active Substance: MONTELUKAST SODIUM
     Indication: Asthma prophylaxis
     Dosage: 10 MILLIGRAM
     Route: 048
     Dates: start: 20210524
  20. MORPHINE SULFATE [Concomitant]
     Active Substance: MORPHINE SULFATE
     Indication: Back pain
     Dosage: 50 MILLIGRAM
     Route: 048
     Dates: end: 20210613
  21. MORPHINE SULFATE [Concomitant]
     Active Substance: MORPHINE SULFATE
     Dosage: 120 MILLIGRAM
     Route: 048
     Dates: start: 20210604, end: 20210626
  22. MORPHINE SULFATE [Concomitant]
     Active Substance: MORPHINE SULFATE
     Dosage: AS REQUIRED
     Route: 048
     Dates: start: 20210614, end: 20210616
  23. ACETAMINOPHEN [Concomitant]
     Active Substance: ACETAMINOPHEN
     Indication: Back pain
     Dosage: 4 GRAM
     Route: 048
     Dates: start: 20140324
  24. ALBUTEROL [Concomitant]
     Active Substance: ALBUTEROL
     Indication: Asthma prophylaxis
     Route: 055
  25. SENNA [Concomitant]
     Active Substance: SENNA LEAF\SENNOSIDES\SENNOSIDES A AND B
     Indication: Constipation
     Route: 048
     Dates: end: 20210613
  26. OMEPRAZOLE [Concomitant]
     Active Substance: OMEPRAZOLE
     Indication: Hiatus hernia
     Dosage: 20 MILLIGRAM
     Route: 048
     Dates: start: 20100820
  27. FLUCONAZOLE [Concomitant]
     Active Substance: FLUCONAZOLE
     Indication: Antifungal prophylaxis
     Dosage: 100 MILLIGRAM
     Route: 048
     Dates: start: 20210613
  28. DALTEPARIN [Concomitant]
     Active Substance: DALTEPARIN
     Indication: Thrombosis prophylaxis
     Route: 058
     Dates: end: 20210612
  29. ACYCLOVIR [Concomitant]
     Active Substance: ACYCLOVIR
     Indication: Antiviral prophylaxis
     Dosage: 800 MILLIGRAM
     Route: 048
  30. MORPHINE SULFATE [Concomitant]
     Active Substance: MORPHINE SULFATE
     Indication: Back pain
     Dosage: 15 MILLIGRAM
     Route: 048
     Dates: end: 20210613
  31. AMITRIPTYLINE [Concomitant]
     Active Substance: AMITRIPTYLINE
     Indication: Peripheral sensory neuropathy
     Dosage: 20 MILLIGRAM
     Route: 048
     Dates: start: 20210414, end: 20211103
  32. CARBOMER [Concomitant]
     Active Substance: CARBOMER
     Indication: Dry eye
     Route: 047
     Dates: start: 20171030, end: 20210613
  33. COTRIMOXAZOLE [Concomitant]
     Active Substance: SULFAMETHOXAZOLE\TRIMETHOPRIM
     Indication: Antifungal prophylaxis
     Dosage: 800/160MG
     Route: 048
     Dates: end: 20210630
  34. ONDANSETRON [Concomitant]
     Active Substance: ONDANSETRON
     Indication: Antiemetic supportive care
     Dosage: 8 MILLIGRAM
     Route: 048
  35. BUDESONIDE\FORMOTEROL FUMARATE [Concomitant]
     Active Substance: BUDESONIDE\FORMOTEROL FUMARATE
     Indication: Asthma prophylaxis
     Route: 065

REACTIONS (2)
  - Pneumonia [Recovered/Resolved]
  - Lower respiratory tract infection [Recovered/Resolved]

NARRATIVE: CASE EVENT DATE: 20210613
